FAERS Safety Report 9203704 (Version 1)
Quarter: 2013Q2

REPORT INFORMATION
  Report Type: Report from Study
  Country: BR (occurrence: BR)
  Receive Date: 20130402
  Receipt Date: 20130402
  Transmission Date: 20140414
  Serious: Yes (Other)
  Sender: FDA-Public Use
  Company Number: BR-US-EMD SERONO, INC.-7201827

PATIENT
  Age: 51 Year
  Sex: Female

DRUGS (7)
  1. REBIF [Suspect]
     Indication: RELAPSING-REMITTING MULTIPLE SCLEROSIS
     Dates: start: 20020425
  2. LASIX [Concomitant]
     Indication: HYPERTENSION
  3. NOVANLOX (NOVALOX) [Concomitant]
     Indication: HYPERTENSION
  4. CIPROFIBRATE [Concomitant]
     Indication: HYPERTENSION
  5. ATENOLOL [Concomitant]
     Indication: HYPERTENSION
  6. BENICAR [Concomitant]
     Indication: HYPERTENSION
  7. ATENSINE [Concomitant]
     Indication: HYPERTENSION

REACTIONS (3)
  - Infarction [Recovering/Resolving]
  - Blood cholesterol increased [Unknown]
  - Blood triglycerides increased [Unknown]
